FAERS Safety Report 8059451-9 (Version None)
Quarter: 2012Q1

REPORT INFORMATION
  Report Type: 
  Country: None (occurrence: None)
  Receive Date: 20120119
  Receipt Date: 20120119
  Transmission Date: 20120608
  Serious: Yes (Hospitalization, Other)
  Sender: FDA-Public Use
  Company Number: None

PATIENT
  Sex: Male
  Weight: 68.9467 kg

DRUGS (5)
  1. METHOTREXATE [Suspect]
     Indication: BLADDER CANCER
     Dosage: 52 MG X 1 EVERY 2 WEEKS IV PUSH
     Route: 042
     Dates: start: 20120112
  2. CISPLATIN [Suspect]
     Indication: BLADDER CANCER
     Dosage: 122 MG OVER 2 DAYS EVERY 2 WEEKS
     Dates: start: 20120112
  3. CISPLATIN [Suspect]
     Indication: BLADDER CANCER
     Dosage: 122 MG OVER 2 DAYS EVERY 2 WEEKS
     Dates: start: 20120113
  4. VINCRISTINE [Suspect]
     Indication: BLADDER CANCER
     Dosage: 5.2 MG X 1 EVERY 2 WEEKS IV PUSH
     Route: 042
     Dates: start: 20120112
  5. ADRIAMYCIN PFS [Suspect]
     Indication: BLADDER CANCER
     Dosage: 52 MG X1 EVERY 2 WEEKS IV PUSH
     Route: 042
     Dates: start: 20120112

REACTIONS (5)
  - DYSPNOEA [None]
  - FLUID OVERLOAD [None]
  - RENAL FAILURE [None]
  - OEDEMA PERIPHERAL [None]
  - CARDIAC FAILURE [None]
